FAERS Safety Report 13189880 (Version 2)
Quarter: 2017Q2

REPORT INFORMATION
  Report Type: Report from Study
  Country: US (occurrence: US)
  Receive Date: 20170206
  Receipt Date: 20170609
  Transmission Date: 20170830
  Serious: Yes (Hospitalization)
  Sender: FDA-Public Use
  Company Number: US-JNJFOC-20170114516

PATIENT
  Age: 51 Year
  Sex: Male

DRUGS (5)
  1. IBUPROFEN. [Concomitant]
     Active Substance: IBUPROFEN
  2. PROCHLORPERAZINE EDISYLATE. [Concomitant]
     Active Substance: PROCHLORPERAZINE EDISYLATE
     Dosage: PRN
  3. IMBRUVICA [Suspect]
     Active Substance: IBRUTINIB
     Indication: CHRONIC LYMPHOCYTIC LEUKAEMIA
     Dosage: 420 MG, QD
     Route: 048
     Dates: start: 20160725, end: 20161121
  4. MORPHINE [Concomitant]
     Active Substance: MORPHINE
  5. SOMA [Concomitant]
     Active Substance: CARISOPRODOL

REACTIONS (13)
  - Ventricular fibrillation [Unknown]
  - Acute kidney injury [Recovering/Resolving]
  - Pulmonary oedema [Unknown]
  - Hypoxic-ischaemic encephalopathy [Recovering/Resolving]
  - Acute left ventricular failure [Unknown]
  - Gastritis [Unknown]
  - Acute myocardial infarction [Recovered/Resolved]
  - Coronary artery disease [Unknown]
  - Memory impairment [Not Recovered/Not Resolved]
  - Pneumonia aspiration [Unknown]
  - Anaemia [Unknown]
  - Cardiogenic shock [Unknown]
  - Acute psychosis [Recovering/Resolving]

NARRATIVE: CASE EVENT DATE: 20161127
